FAERS Safety Report 5789315-2 (Version None)
Quarter: 2008Q2

REPORT INFORMATION
  Report Type: 
  Country: None (occurrence: None)
  Receive Date: 20080625
  Receipt Date: 20080625
  Transmission Date: 20081010
  Serious: No
  Sender: FDA-Public Use
  Company Number: None

PATIENT
  Age: 29 Year
  Sex: Male
  Weight: 93 kg

DRUGS (1)
  1. PERPHENAZINE [Suspect]
     Dosage: 64 MG DAILY PO
     Route: 048

REACTIONS (1)
  - NEUTROPENIA [None]
